FAERS Safety Report 20818802 (Version 1)
Quarter: 2022Q2

REPORT INFORMATION
  Report Type: Spontaneous
  Country: US (occurrence: US)
  Receive Date: 20220512
  Receipt Date: 20220512
  Transmission Date: 20220721
  Serious: No
  Sender: FDA-Public Use
  Company Number: US-GLENMARK PHARMACEUTICALS-2022GMK070123

PATIENT

DRUGS (2)
  1. VERAPAMIL [Suspect]
     Active Substance: VERAPAMIL HYDROCHLORIDE
     Indication: Blood pressure abnormal
     Dosage: UNK
     Route: 048
  2. VERAPAMIL [Suspect]
     Active Substance: VERAPAMIL HYDROCHLORIDE
     Indication: Blood pressure abnormal
     Dosage: UNK
     Route: 048

REACTIONS (3)
  - Cough [Unknown]
  - Blood pressure increased [Unknown]
  - Drug ineffective [Unknown]
